FAERS Safety Report 6760311-1 (Version None)
Quarter: 2010Q2

REPORT INFORMATION
  Report Type: 
  Country: None (occurrence: None)
  Receive Date: 20100604
  Receipt Date: 20100521
  Transmission Date: 20101027
  Serious: Yes (Death)
  Sender: FDA-Public Use
  Company Number: JP-2010-1167

PATIENT
  Age: 61 Year
  Sex: Male

DRUGS (17)
  1. NAVELBINE [Suspect]
     Indication: LUNG NEOPLASM MALIGNANT
     Dosage: 35 MG IV
     Route: 042
     Dates: start: 20090603, end: 20090727
  2. CARBOPLATIN [Suspect]
     Indication: LUNG NEOPLASM MALIGNANT
     Dosage: 350 MG IV
     Route: 040
     Dates: start: 20090603, end: 20090727
  3. NORVASC [Concomitant]
  4. NU-LOTAN [Concomitant]
  5. FLIVAS [Concomitant]
  6. GASTER D [Concomitant]
  7. LIPIDIL [Concomitant]
  8. PIRESPA [Concomitant]
  9. NEORAL [Concomitant]
  10. SELBEX [Concomitant]
  11. PREDONINE [Concomitant]
  12. KIPRES [Concomitant]
  13. ACTONEL [Concomitant]
  14. ALOSENN [Concomitant]
  15. MAGLAX [Concomitant]
  16. GRANISETRON [Concomitant]
  17. DEXART [Concomitant]

REACTIONS (19)
  - BLOOD ALKALINE PHOSPHATASE INCREASED [None]
  - BLOOD BILIRUBIN INCREASED [None]
  - BLOOD CHLORIDE DECREASED [None]
  - BLOOD LACTATE DEHYDROGENASE INCREASED [None]
  - BLOOD UREA INCREASED [None]
  - C-REACTIVE PROTEIN INCREASED [None]
  - CONDITION AGGRAVATED [None]
  - GAMMA-GLUTAMYLTRANSFERASE INCREASED [None]
  - HAEMATOCRIT DECREASED [None]
  - HAEMOGLOBIN DECREASED [None]
  - HYPERTENSION [None]
  - INTERSTITIAL LUNG DISEASE [None]
  - LUNG DISORDER [None]
  - MEAN CELL HAEMOGLOBIN INCREASED [None]
  - PLATELET COUNT DECREASED [None]
  - PROTHROMBIN TIME PROLONGED [None]
  - RED BLOOD CELL COUNT DECREASED [None]
  - RESPIRATORY FAILURE [None]
  - WHITE BLOOD CELL COUNT INCREASED [None]
